FAERS Safety Report 23197520 (Version 1)
Quarter: 2023Q4

REPORT INFORMATION
  Report Type: Report from Study
  Country: US (occurrence: US)
  Receive Date: 20231117
  Receipt Date: 20231117
  Transmission Date: 20240110
  Serious: Yes (Hospitalization, Other)
  Sender: FDA-Public Use
  Company Number: US-PFIZER INC-PV202300183440

PATIENT
  Age: 11 Year
  Sex: Female

DRUGS (11)
  1. TALAZOPARIB [Suspect]
     Active Substance: TALAZOPARIB
     Indication: Ewing^s sarcoma
     Dosage: 500 UG, 2X/DAY (500 MCG BID D1)
     Dates: start: 20231024, end: 20231024
  2. TALAZOPARIB [Suspect]
     Active Substance: TALAZOPARIB
     Dosage: 1000 UG, CYCLIC (1000 MCG QD DAYS 2-6)
     Dates: start: 20231025, end: 20231029
  3. ONIVYDE [Suspect]
     Active Substance: IRINOTECAN HYDROCHLORIDE
     Indication: Ewing^s sarcoma
     Dosage: 283.8 MG (ONCE)
     Dates: start: 20231024, end: 20231024
  4. DIPHENHYDRAMINE [Concomitant]
     Active Substance: DIPHENHYDRAMINE
     Indication: Antiallergic therapy
     Dosage: UNK
     Route: 048
     Dates: start: 20230817
  5. DIPHENHYDRAMINE [Concomitant]
     Active Substance: DIPHENHYDRAMINE
     Indication: Antiallergic therapy
     Dosage: UNK
     Route: 042
     Dates: start: 20231024, end: 20231024
  6. LOPERAMIDE [Concomitant]
     Active Substance: LOPERAMIDE
     Indication: Antidiarrhoeal supportive care
     Dosage: UNK
     Route: 048
     Dates: start: 20230817
  7. MORPHINE [Concomitant]
     Active Substance: MORPHINE
     Indication: Analgesic therapy
     Dosage: UNK
     Route: 048
     Dates: start: 20230811
  8. CEFIXIME [Concomitant]
     Active Substance: CEFIXIME
     Indication: Prophylaxis
     Dosage: UNK
     Route: 048
     Dates: start: 20231024, end: 20231103
  9. LEVOTHYROXINE [Concomitant]
     Active Substance: LEVOTHYROXINE
     Indication: Thyroid therapy
     Dosage: UNK
     Route: 048
     Dates: start: 202303
  10. ONDANSETRON [Concomitant]
     Active Substance: ONDANSETRON
     Indication: Antiemetic supportive care
     Dosage: UNK
     Route: 048
     Dates: start: 20230817
  11. FAMOTIDINE [Concomitant]
     Active Substance: FAMOTIDINE
     Indication: Prophylaxis
     Dosage: UNK
     Route: 048
     Dates: start: 20230821

REACTIONS (1)
  - Febrile neutropenia [Not Recovered/Not Resolved]

NARRATIVE: CASE EVENT DATE: 20231105
